FAERS Safety Report 7089312-3 (Version None)
Quarter: 2010Q4

REPORT INFORMATION
  Report Type: 
  Country: None (occurrence: None)
  Receive Date: 20101108
  Receipt Date: 20101101
  Transmission Date: 20110411
  Serious: Yes (Other)
  Sender: FDA-Public Use
  Company Number: GB-PFIZER INC-2010140725

PATIENT
  Sex: Male

DRUGS (6)
  1. NITROGLYCERIN [Suspect]
     Dosage: 1 DF, 1X/DAY
     Route: 062
  2. XALATAN [Concomitant]
     Route: 047
  3. ALPHAGAN [Concomitant]
  4. DIAMOX SRC [Concomitant]
  5. BRINZOLAMIDE/TIMOLOL [Concomitant]
     Route: 047
  6. ASTRIN [Concomitant]
     Dosage: 5 MG
     Route: 048

REACTIONS (1)
  - GLAUCOMA [None]
